FAERS Safety Report 7297184-7 (Version None)
Quarter: 2011Q1

REPORT INFORMATION
  Report Type: 
  Country: None (occurrence: None)
  Receive Date: 20110216
  Receipt Date: 20110211
  Transmission Date: 20110831
  Serious: No
  Sender: FDA-Public Use
  Company Number: US-PFIZER INC-2011031599

PATIENT
  Sex: Male
  Weight: 83.9 kg

DRUGS (2)
  1. XALATAN [Suspect]
     Indication: PIGMENTARY GLAUCOMA
     Dosage: ONE DROP IN EACH EYE DAILY
  2. TEVETEN [Concomitant]
     Indication: HYPERTENSION
     Dosage: 600 MG, 1X/DAY
     Route: 048

REACTIONS (1)
  - PHOTOPSIA [None]
